FAERS Safety Report 13248515 (Version 1)
Quarter: 2017Q1

REPORT INFORMATION
  Report Type: Spontaneous
  Country: US (occurrence: US)
  Receive Date: 20170218
  Receipt Date: 20170218
  Transmission Date: 20170428
  Serious: No
  Sender: FDA-Public Use
  Company Number: US-ALLERGAN-1659033US

PATIENT
  Age: 54 Year
  Sex: Female

DRUGS (2)
  1. NATURAL TEARS [Concomitant]
     Active Substance: POLYVINYL ALCOHOL\POVIDONE
     Dosage: UNK UNK, BID
     Route: 047
  2. RESTASIS [Suspect]
     Active Substance: CYCLOSPORINE
     Indication: DRY EYE
     Dosage: 1 DROP BID BOTH EYES
     Route: 047
     Dates: start: 20160525

REACTIONS (7)
  - Dysphagia [Unknown]
  - Incorrect dose administered [Unknown]
  - Incorrect product storage [Unknown]
  - Eye irritation [Unknown]
  - Visual acuity reduced [Unknown]
  - Inappropriate schedule of drug administration [Unknown]
  - Crying [Unknown]

NARRATIVE: CASE EVENT DATE: 20160525
